FAERS Safety Report 13646684 (Version 1)
Quarter: 2017Q2

REPORT INFORMATION
  Report Type: Spontaneous
  Country: US (occurrence: US)
  Receive Date: 20170612
  Receipt Date: 20170612
  Transmission Date: 20170830
  Serious: No
  Sender: FDA-Public Use
  Company Number: None

PATIENT
  Age: 62 Year
  Sex: Female

DRUGS (1)
  1. ENBREL [Suspect]
     Active Substance: ETANERCEPT
     Route: 058
     Dates: start: 20170421

REACTIONS (3)
  - Device malfunction [None]
  - Injection site pruritus [None]
  - Injection site erythema [None]

NARRATIVE: CASE EVENT DATE: 20170501
